FAERS Safety Report 8932481 (Version 1)
Quarter: 2012Q4

REPORT INFORMATION
  Report Type: Spontaneous
  Country: US (occurrence: None)
  Receive Date: 20121126
  Receipt Date: 20121126
  Transmission Date: 20130627
  Serious: Yes (Hospitalization, Other)
  Sender: FDA-Public Use
  Company Number: None

PATIENT
  Age: 66 Year
  Sex: Female
  Weight: 55.5 kg

DRUGS (1)
  1. VIDAZA 100 MG/ VIAL CELGENE CORPORATION [Suspect]
     Dosage: ONCE DAILY INJECTION
     Route: 058
     Dates: start: 20121008, end: 20121011

REACTIONS (6)
  - Injection site erythema [None]
  - Malaise [None]
  - Pneumonia [None]
  - Injection site vesicles [None]
  - Injection site cellulitis [None]
  - Wound [None]
